FAERS Safety Report 8021383-X (Version None)
Quarter: 2012Q1

REPORT INFORMATION
  Report Type: 
  Country: None (occurrence: None)
  Receive Date: 20120104
  Receipt Date: 20120102
  Transmission Date: 20120608
  Serious: Yes (Other)
  Sender: FDA-Public Use
  Company Number: CO-PFIZER INC-2012001267

PATIENT
  Sex: Male

DRUGS (2)
  1. CARDURA [Suspect]
     Indication: BENIGN PROSTATIC HYPERPLASIA
     Dosage: 2 MG TWICE PER WEEK
     Route: 048
     Dates: start: 20040101
  2. LOSARTAN [Concomitant]
     Dosage: UNK

REACTIONS (2)
  - HEARING IMPAIRED [None]
  - HYPERTENSION [None]
